FAERS Safety Report 10070790 (Version 2)
Quarter: 2014Q2

REPORT INFORMATION
  Report Type: Report from Study
  Country: US (occurrence: US)
  Receive Date: 20140410
  Receipt Date: 20140416
  Transmission Date: 20141212
  Serious: Yes (Hospitalization)
  Sender: FDA-Public Use
  Company Number: US-VERTEX PHARMACEUTICALS INC-2014-001852

PATIENT
  Sex: Male

DRUGS (9)
  1. VX-770 [Suspect]
     Indication: CYSTIC FIBROSIS
     Dosage: 150 MG, BID
     Dates: start: 20120315
  2. ALBUTEROL [Concomitant]
  3. ZITHROMAX [Concomitant]
  4. PULMOZYME [Concomitant]
  5. FLONASE [Concomitant]
  6. CREON [Concomitant]
  7. AQUADEKS [Concomitant]
  8. PRILOSEC [Concomitant]
  9. MIRALAX [Concomitant]

REACTIONS (1)
  - Nasopharyngitis [Recovered/Resolved]
